FAERS Safety Report 5160849-7 (Version None)
Quarter: 2006Q4

REPORT INFORMATION
  Report Type: 
  Country: None (occurrence: None)
  Receive Date: 20061130
  Receipt Date: 20061108
  Transmission Date: 20070319
  Serious: Yes (Hospitalization)
  Sender: FDA-Public Use
  Company Number: SG-RB-004381-06

PATIENT
  Age: 41 Year
  Sex: Male

DRUGS (1)
  1. SUBUTEX [Suspect]
     Indication: DRUG USE FOR UNKNOWN INDICATION
     Route: 051

REACTIONS (6)
  - ABSCESS [None]
  - ANEURYSM [None]
  - DEEP VEIN THROMBOSIS [None]
  - INTENTIONAL DRUG MISUSE [None]
  - PAIN [None]
  - SWELLING [None]
